FAERS Safety Report 9630630 (Version 1)
Quarter: 2013Q4

REPORT INFORMATION
  Report Type: Spontaneous
  Country: US (occurrence: None)
  Receive Date: 20131016
  Receipt Date: 20131016
  Transmission Date: 20140711
  Serious: Yes (Disabling, Other)
  Sender: FDA-Public Use
  Company Number: None

PATIENT
  Age: 32 Year
  Sex: Male
  Weight: 76.2 kg

DRUGS (1)
  1. FLEXERIL [Suspect]
     Indication: MUSCLE STRAIN
     Route: 048
     Dates: start: 20130914, end: 20131001

REACTIONS (14)
  - Somnolence [None]
  - Decreased appetite [None]
  - Vision blurred [None]
  - Coordination abnormal [None]
  - Lethargy [None]
  - Loss of libido [None]
  - Muscular weakness [None]
  - Disturbance in attention [None]
  - Nightmare [None]
  - Mood swings [None]
  - Joint stiffness [None]
  - Back pain [None]
  - Arthralgia [None]
  - Arthralgia [None]
